FAERS Safety Report 22330286 (Version 1)
Quarter: 2023Q2

REPORT INFORMATION
  Report Type: Spontaneous
  Country: US (occurrence: None)
  Receive Date: 20230517
  Receipt Date: 20230517
  Transmission Date: 20230721
  Serious: No
  Sender: FDA-Public Use
  Company Number: US-ROCHE-3071930

PATIENT
  Sex: Female

DRUGS (22)
  1. ACTEMRA [Suspect]
     Active Substance: TOCILIZUMAB
     Indication: Rheumatoid arthritis
     Route: 058
     Dates: start: 20130921
  2. ACTEMRA [Suspect]
     Active Substance: TOCILIZUMAB
  3. ACTEMRA [Concomitant]
     Active Substance: TOCILIZUMAB
     Dosage: 400MG/20ML
     Route: 065
  4. ATORVASTATIN [Concomitant]
     Active Substance: ATORVASTATIN
  5. CEVIMELINE HYDROCHLORIDE [Concomitant]
     Active Substance: CEVIMELINE HYDROCHLORIDE
  6. CYCLOBENZAPRINE [Concomitant]
     Active Substance: CYCLOBENZAPRINE
  7. FENOFIBRATE [Concomitant]
     Active Substance: FENOFIBRATE
  8. FLUOCINOLONE [Concomitant]
     Active Substance: FLUOCINOLONE
  9. FLUTICASONE [Concomitant]
     Active Substance: FLUTICASONE
     Dosage: 50MCG/AC
  10. FOLIC ACID [Concomitant]
     Active Substance: FOLIC ACID
  11. IRON [Concomitant]
     Active Substance: IRON
     Dosage: 325
  12. METFORMIN HYDROCHLORIDE [Concomitant]
     Active Substance: METFORMIN HYDROCHLORIDE
  13. TRAZODONE HCL [Concomitant]
     Active Substance: TRAZODONE HYDROCHLORIDE
  14. PREDNISONE [Concomitant]
     Active Substance: PREDNISONE
  15. GEMFIBROZIL [Concomitant]
     Active Substance: GEMFIBROZIL
  16. OMEPRAZOLE [Concomitant]
     Active Substance: OMEPRAZOLE
  17. FLUVIRIN NOS [Concomitant]
     Active Substance: INFLUENZA VIRUS VACCINE
     Dates: start: 2013, end: 2014
  18. BUPROPION HYDROCHLORIDE XL [Concomitant]
     Active Substance: BUPROPION HYDROCHLORIDE
  19. AMRIX [Concomitant]
     Active Substance: CYCLOBENZAPRINE HYDROCHLORIDE
  20. AMLODIPINE BESYLATE [Concomitant]
     Active Substance: AMLODIPINE BESYLATE
  21. CITALOPRAM HYDROBROMIDE [Concomitant]
     Active Substance: CITALOPRAM HYDROBROMIDE
  22. LEVOTHYROXINE SODIUM [Concomitant]
     Active Substance: LEVOTHYROXINE SODIUM

REACTIONS (1)
  - Arthralgia [Recovered/Resolved]
